FAERS Safety Report 7820693-6 (Version None)
Quarter: 2011Q4

REPORT INFORMATION
  Report Type: 
  Country: None (occurrence: None)
  Receive Date: 20111013
  Receipt Date: 20110805
  Transmission Date: 20120403
  Serious: Yes (Hospitalization)
  Sender: FDA-Public Use
  Company Number: 2011MA014799

PATIENT
  Age: 22 Year
  Sex: Male

DRUGS (2)
  1. FEVERALL [Suspect]
     Indication: TOOTH INFECTION
     Dosage: 2 G;QD;PO
     Route: 048
     Dates: start: 20110707, end: 20110713
  2. AMOXICILLIN [Suspect]
     Indication: TOOTH INFECTION
     Dosage: 2 G;QD;PO
     Route: 048
     Dates: start: 20110707, end: 20110713

REACTIONS (2)
  - BILE DUCT STONE [None]
  - HEPATITIS ACUTE [None]
